FAERS Safety Report 4696057-3 (Version None)
Quarter: 2005Q2

REPORT INFORMATION
  Report Type: 
  Country: None (occurrence: None)
  Receive Date: 20050608
  Receipt Date: 20040907
  Transmission Date: 20051028
  Serious: Yes (Other)
  Sender: FDA-Public Use
  Company Number: 380004

PATIENT

DRUGS (2)
  1. ACCUTANE [Suspect]
     Indication: ACNE
     Dosage: ORAL
     Route: 048
     Dates: start: 20021217, end: 20030530
  2. ORAL CONTRACEPTION [Concomitant]

REACTIONS (2)
  - LIVE BIRTH [None]
  - NO ADVERSE EFFECT [None]
